FAERS Safety Report 4672879-X (Version None)
Quarter: 2005Q2

REPORT INFORMATION
  Report Type: 
  Country: None (occurrence: None)
  Receive Date: 20050523
  Receipt Date: 20050509
  Transmission Date: 20051028
  Serious: Yes (Other)
  Sender: FDA-Public Use
  Company Number: 2005072126

PATIENT
  Age: 37 Year
  Sex: Female
  Weight: 90.7194 kg

DRUGS (7)
  1. CELEBREX [Suspect]
     Indication: PAIN
     Dosage: 200 MG (200 MG PRN) ORAL
     Route: 048
     Dates: start: 20041001, end: 20050506
  2. GLUCOSAMINE [Concomitant]
  3. MULTI-VITAMINS [Concomitant]
  4. VIT C TAB [Concomitant]
  5. CALCIUM GLUCONATE [Concomitant]
  6. HYDROCHLOROTHIAZIDE [Concomitant]
  7. NORTRIPTYLINE HCL [Concomitant]

REACTIONS (3)
  - HYPERSENSITIVITY [None]
  - IMPAIRED HEALING [None]
  - MIGRAINE [None]
